FAERS Safety Report 6996205-6 (Version None)
Quarter: 2010Q3

REPORT INFORMATION
  Report Type: 
  Country: None (occurrence: None)
  Receive Date: 20100918
  Receipt Date: 20081229
  Transmission Date: 20110219
  Serious: Yes (Life-Threatening)
  Sender: FDA-Public Use
  Company Number: US-WYE-H07430908

PATIENT
  Sex: Female

DRUGS (2)
  1. EFFEXOR XR [Suspect]
     Dosage: OVERDOSE AMOUNT 15 CAPSULES
     Route: 048
     Dates: start: 20081229, end: 20081229
  2. SPIRIVA [Concomitant]
     Dosage: 18 MCG
     Dates: start: 20080813

REACTIONS (1)
  - INTENTIONAL OVERDOSE [None]
